FAERS Safety Report 14586086 (Version 2)
Quarter: 2018Q3

REPORT INFORMATION
  Report Type: Report from Study
  Country: US (occurrence: US)
  Receive Date: 20180301
  Receipt Date: 20180802
  Transmission Date: 20181010
  Serious: Yes (Other)
  Sender: FDA-Public Use
  Company Number: PHEH2018US007089

PATIENT
  Sex: Female

DRUGS (2)
  1. COSENTYX [Suspect]
     Active Substance: SECUKINUMAB
     Indication: ANKYLOSING SPONDYLITIS
     Dosage: 150 MG, Q2W
     Route: 058
  2. COSENTYX [Suspect]
     Active Substance: SECUKINUMAB
     Dosage: 450 MG, UNK (EVERY WEEK AND HALF)
     Route: 058

REACTIONS (5)
  - Coeliac disease [Unknown]
  - Inappropriate schedule of drug administration [Unknown]
  - Stomatitis [Unknown]
  - Prescribed overdose [Unknown]
  - Drug ineffective [Unknown]
